FAERS Safety Report 4998470-3 (Version None)
Quarter: 2006Q2

REPORT INFORMATION
  Report Type: 
  Country: None (occurrence: None)
  Receive Date: 20060508
  Receipt Date: 20060427
  Transmission Date: 20061013
  Serious: Yes (Disabling, Other)
  Sender: FDA-Public Use
  Company Number: 2006057594

PATIENT
  Age: 50 Year
  Sex: Female
  Weight: 84.369 kg

DRUGS (3)
  1. ACCUPRIL [Suspect]
     Indication: HYPERTENSION
     Dosage: 20 MG (20 MG, DAILY  INTERVAL: EVERY DAY), ORAL
     Route: 048
  2. LIPITOR [Suspect]
     Indication: BLOOD CHOLESTEROL INCREASED
     Dosage: 20 MG (20 MG, DAILY  INTERVAL: EVERY DAY), ORAL
     Route: 048
     Dates: start: 20050801
  3. PREVACID [Concomitant]

REACTIONS (5)
  - BLOOD CHOLESTEROL INCREASED [None]
  - DYSSTASIA [None]
  - JOINT INJURY [None]
  - OEDEMA PERIPHERAL [None]
  - WEIGHT INCREASED [None]
